FAERS Safety Report 7782180-3 (Version None)
Quarter: 2011Q3

REPORT INFORMATION
  Report Type: 
  Country: None (occurrence: None)
  Receive Date: 20110927
  Receipt Date: 20101124
  Transmission Date: 20111222
  Serious: No
  Sender: FDA-Public Use
  Company Number: US-BAYER-2010-005156

PATIENT
  Sex: Female

DRUGS (17)
  1. LIDODERM [Concomitant]
     Indication: RHEUMATOID ARTHRITIS
  2. NORTRIPTYLINE HCL [Concomitant]
     Indication: RHEUMATOID ARTHRITIS
  3. PROAIR HFA [Concomitant]
  4. AMLODIPINE [Concomitant]
     Indication: HYPERTENSION
  5. SIMVASTATIN [Concomitant]
     Indication: BLOOD CHOLESTEROL INCREASED
  6. NOVOLIN R [Concomitant]
     Indication: DIABETES MELLITUS
  7. NOVOLIN N [Concomitant]
     Indication: DIABETES MELLITUS
  8. HYDROCHLOROTHIAZID [Concomitant]
     Indication: FLUID RETENTION
  9. METHIMAZOLE [Concomitant]
     Indication: THYROID DISORDER
  10. PREDNISONE [Concomitant]
     Indication: RHEUMATOID ARTHRITIS
  11. HUMIRA [Concomitant]
     Indication: RHEUMATOID ARTHRITIS
  12. OXYMORPHONE [Concomitant]
     Indication: PAIN
  13. CIPRO [Suspect]
  14. NORTRIPTYLINE HCL [Concomitant]
     Indication: PAIN
  15. NORTRIPTYLINE HCL [Concomitant]
     Indication: SLEEP DISORDER
  16. LISINOPRIL [Concomitant]
     Indication: HYPERTENSION
  17. AZATHIOPRINE [Concomitant]
     Indication: RHEUMATOID ARTHRITIS

REACTIONS (2)
  - RASH [None]
  - URTICARIA [None]
